FAERS Safety Report 8798391 (Version 3)
Quarter: 2012Q4

REPORT INFORMATION
  Report Type: 
  Country: US (occurrence: US)
  Receive Date: 20120920
  Receipt Date: 20121030
  Transmission Date: 20130627
  Serious: No
  Sender: FDA-Public Use
  Company Number: US-B.I. PHARMACEUTICALS,INC./RIDGEFIELD-2012-BP-22723BP

PATIENT
  Sex: Male
  Weight: 81 kg

DRUGS (4)
  1. SPIRIVA [Suspect]
     Indication: EMPHYSEMA
     Dosage: 18 mcg
     Route: 055
     Dates: start: 201207, end: 201207
  2. PANTOPRAZOLE SODIUM DR [Concomitant]
     Indication: GASTROOESOPHAGEAL REFLUX DISEASE
     Dosage: 40 mg
     Route: 048
     Dates: start: 201207
  3. METOPROLOL  TARTRATE [Concomitant]
     Indication: ARRHYTHMIA
     Dosage: 80 mg
     Route: 048
     Dates: start: 2006
  4. ALBUTEROL [Concomitant]
     Indication: EMPHYSEMA
     Route: 055
     Dates: start: 2000

REACTIONS (3)
  - Dyspnoea [Recovered/Resolved]
  - Product quality issue [Not Recovered/Not Resolved]
  - Pulmonary function test abnormal [Unknown]
